FAERS Safety Report 9192474 (Version 3)
Quarter: 2013Q3

REPORT INFORMATION
  Report Type: Spontaneous
  Country: US (occurrence: US)
  Receive Date: 20130327
  Receipt Date: 20130813
  Transmission Date: 20140515
  Serious: Yes (Other)
  Sender: FDA-Public Use
  Company Number: US-PFIZER INC-2013097375

PATIENT
  Age: 76 Year
  Sex: Female
  Weight: 57.14 kg

DRUGS (22)
  1. XELJANZ [Suspect]
     Indication: RHEUMATOID ARTHRITIS
     Dosage: 5 MG, 2X/DAY
     Route: 048
     Dates: start: 201304, end: 20130802
  2. SENOKOT [Concomitant]
     Dosage: 8.6 MG, UNK
  3. ROPINIROLE [Concomitant]
     Dosage: 3 MG, UNK
  4. FUROSEMIDE [Concomitant]
     Dosage: 40 MG, UNK
  5. FUROSEMIDE [Concomitant]
     Dosage: 20 MG/ 2 ML
  6. CARDIZEM CD [Concomitant]
     Dosage: 180 MG, 1X/DAY
  7. LANOXIN [Concomitant]
     Dosage: 0.125 MG, UNK
  8. ADVAIR HFA [Concomitant]
     Dosage: 115/21
  9. METOPROLOL ER [Concomitant]
     Dosage: 25 MG, UNK
  10. NEXIUM [Concomitant]
     Dosage: 10 MG, UNK
  11. SPIRONOLACTONE [Concomitant]
     Dosage: 25 MG, UNK
  12. METHOTREXATE [Concomitant]
     Dosage: 100/ 4 ML
  13. ASPIRIN [Concomitant]
     Dosage: 325 MG, UNK
  14. MAGNESIUM GL [Concomitant]
     Dosage: 200 MG, UNK
  15. CALCIUM WITH VITAMIN D [Concomitant]
     Dosage: UNK
  16. CRANBERRY [Concomitant]
     Dosage: 300 MG, UNK
  17. POTASSIUM [Concomitant]
     Dosage: 25 MEQ, UNK
  18. VITAMIN B12 [Concomitant]
     Dosage: 100 UG, UNK
  19. FOLIC ACID [Concomitant]
     Dosage: UNK
  20. ZOLOFT [Concomitant]
     Dosage: UNK
  21. SPIRIVA [Concomitant]
     Dosage: UNK
  22. CERTOLIZUMAB [Concomitant]
     Dosage: UNK

REACTIONS (3)
  - Urinary tract infection [Recovering/Resolving]
  - Pulmonary mass [Unknown]
  - Dry mouth [Unknown]
